FAERS Safety Report 9223185 (Version 1)
Quarter: 2013Q2

REPORT INFORMATION
  Report Type: Spontaneous
  Country: FR (occurrence: FR)
  Receive Date: 20130410
  Receipt Date: 20130410
  Transmission Date: 20140414
  Serious: Yes (Hospitalization, Other)
  Sender: FDA-Public Use
  Company Number: FR-ELI_LILLY_AND_COMPANY-FR201304002564

PATIENT
  Age: 75 Year
  Sex: Male

DRUGS (2)
  1. EFIENT [Suspect]
     Indication: STENT PLACEMENT
     Dosage: UNK
  2. KARDEGIC [Concomitant]

REACTIONS (5)
  - Purpura [Recovered/Resolved]
  - Leukocytoclastic vasculitis [Recovered/Resolved]
  - Rectal haemorrhage [Unknown]
  - Abdominal pain [Unknown]
  - Blood creatinine increased [Unknown]
